FAERS Safety Report 9266380 (Version 1)
Quarter: 2013Q2

REPORT INFORMATION
  Report Type: Spontaneous
  Country: US (occurrence: US)
  Receive Date: 20130502
  Receipt Date: 20130502
  Transmission Date: 20140414
  Serious: Yes (Other)
  Sender: FDA-Public Use
  Company Number: US-BIOGENIDEC-2013BI038984

PATIENT
  Age: 41 Year
  Sex: Female

DRUGS (1)
  1. AVONEX [Suspect]
     Indication: MULTIPLE SCLEROSIS
     Route: 030
     Dates: end: 20130303

REACTIONS (7)
  - Cerebrovascular accident [Recovered/Resolved]
  - Lymphoedema [Unknown]
  - Gait disturbance [Not Recovered/Not Resolved]
  - Osteoporosis [Unknown]
  - Mobility decreased [Unknown]
  - Multiple sclerosis relapse [Unknown]
  - Drug ineffective [Unknown]
